FAERS Safety Report 6245371-9 (Version None)
Quarter: 2009Q2

REPORT INFORMATION
  Report Type: 
  Country: None (occurrence: None)
  Receive Date: 20090625
  Receipt Date: 20090619
  Transmission Date: 20091009
  Serious: Yes (Hospitalization, Other)
  Sender: FDA-Public Use
  Company Number: JP-ROXANE LABORATORIES, INC.-2009-RO-00596RO

PATIENT
  Age: 71 Year
  Sex: Female

DRUGS (5)
  1. CILOSTAZOL [Suspect]
     Indication: CORONARY ARTERY BYPASS
     Dosage: 200 MG
     Dates: end: 20070915
  2. CILOSTAZOL [Suspect]
  3. ASPIRIN [Suspect]
     Indication: CORONARY ARTERY BYPASS
     Dosage: 200 MG
     Dates: end: 20070915
  4. ASPIRIN [Suspect]
  5. LANSOPRAZOLE [Suspect]

REACTIONS (3)
  - ANAEMIA [None]
  - COLITIS COLLAGENOUS [None]
  - DEHYDRATION [None]
